APPROVED DRUG PRODUCT: TENUATE DOSPAN
Active Ingredient: DIETHYLPROPION HYDROCHLORIDE
Strength: 75MG **Federal Register determination that product was not discontinued or withdrawn for safety or effectiveness reasons**
Dosage Form/Route: TABLET, EXTENDED RELEASE;ORAL
Application: N012546 | Product #001
Applicant: ANI PHARMACEUTICALS INC
Approved: Approved Prior to Jan 1, 1982 | RLD: Yes | RS: No | Type: DISCN